FAERS Safety Report 6535084-8 (Version None)
Quarter: 2010Q1

REPORT INFORMATION
  Report Type: 
  Country: None (occurrence: None)
  Receive Date: 20100113
  Receipt Date: 20100104
  Transmission Date: 20100710
  Serious: Yes (Hospitalization)
  Sender: FDA-Public Use
  Company Number: US-BIOGENIDEC-2006BI016740

PATIENT
  Age: 54 Year
  Sex: Female
  Weight: 52 kg

DRUGS (4)
  1. AVONEX [Suspect]
     Indication: MULTIPLE SCLEROSIS
     Route: 030
     Dates: start: 19981001, end: 20030101
  2. AVONEX [Suspect]
     Route: 030
     Dates: start: 20030101
  3. AVONEX [Suspect]
     Route: 030
  4. PROVIGIL [Concomitant]
     Indication: MULTIPLE SCLEROSIS
     Route: 048

REACTIONS (6)
  - ABSCESS LIMB [None]
  - CELLULITIS [None]
  - HERPES ZOSTER [None]
  - MULTIPLE SCLEROSIS [None]
  - PRURITUS [None]
  - URINARY RETENTION [None]
